FAERS Safety Report 20964161 (Version 1)
Quarter: 2022Q2

REPORT INFORMATION
  Report Type: Spontaneous
  Country: US (occurrence: US)
  Receive Date: 20220615
  Receipt Date: 20220615
  Transmission Date: 20220721
  Serious: No
  Sender: FDA-Public Use
  Company Number: US-GE HEALTHCARE-2022CSU002420

PATIENT

DRUGS (4)
  1. MYOVIEW [Suspect]
     Active Substance: TECHNETIUM TC-99M TETROFOSMIN
     Indication: Ventilation/perfusion scan
     Dosage: 1443 MBQ (39 MCI), SINGLE
     Dates: start: 20220404, end: 20220404
  2. MYOVIEW [Suspect]
     Active Substance: TECHNETIUM TC-99M TETROFOSMIN
     Indication: Pulmonary embolism
  3. TECHNETIUM TC-99M [Concomitant]
     Active Substance: TECHNETIUM TC-99M
     Indication: Ventilation/perfusion scan
     Dosage: UNK, SINGLE
     Dates: start: 20220404, end: 20220404
  4. TECHNETIUM TC-99M [Concomitant]
     Active Substance: TECHNETIUM TC-99M
     Indication: Pulmonary embolism

REACTIONS (4)
  - Incorrect route of product administration [Recovered/Resolved]
  - Wrong patient received product [Recovered/Resolved]
  - Wrong product administered [Recovered/Resolved]
  - No adverse event [Recovered/Resolved]

NARRATIVE: CASE EVENT DATE: 20220404
